FAERS Safety Report 5642073-4 (Version None)
Quarter: 2008Q1

REPORT INFORMATION
  Report Type: 
  Country: None (occurrence: None)
  Receive Date: 20080131
  Receipt Date: 20071203
  Transmission Date: 20080703
  Serious: No
  Sender: FDA-Public Use
  Company Number: 163-21880-07110193

PATIENT
  Age: 70 Year
  Sex: Male

DRUGS (3)
  1. REVLIMID [Suspect]
     Indication: MULTIPLE MYELOMA
     Dosage: 10, 25  MG, DAILY X 21 DAYS, ORAL
     Route: 048
     Dates: start: 20070209, end: 20070601
  2. REVLIMID [Suspect]
     Indication: MULTIPLE MYELOMA
     Dosage: 10, 25  MG, DAILY X 21 DAYS, ORAL
     Route: 048
     Dates: start: 20070806
  3. BETA BLOCKER (BETA BLOCKING AGENTS) [Concomitant]

REACTIONS (1)
  - HYPOTENSION [None]
